FAERS Safety Report 25268058 (Version 1)
Quarter: 2025Q2

REPORT INFORMATION
  Report Type: Spontaneous
  Country: US (occurrence: None)
  Receive Date: 20250502
  Receipt Date: 20250502
  Transmission Date: 20250716
  Serious: No
  Sender: FDA-CTU
  Company Number: None

PATIENT
  Age: 80 Year
  Sex: Female

DRUGS (11)
  1. AMBRISENTAN [Suspect]
     Active Substance: AMBRISENTAN
     Indication: Pulmonary fibrosis
     Dosage: FREQUENCY : DAILY;?
     Route: 048
     Dates: start: 20210608
  2. Pramlipexole Dihydrochloride oral tablet [Concomitant]
  3. Flecainide Acetate Oral Tablet Capsule [Concomitant]
  4. Vitamin D3 Ultra Strength Oral Capsule [Concomitant]
  5. Furosemide Oral Tablet [Concomitant]
  6. MYCOPHENOLATE MOFETIL [Concomitant]
     Active Substance: MYCOPHENOLATE MOFETIL
  7. Spironolactone-HCTZ Oral Tablets [Concomitant]
  8. Allupurinol Oral Tablet [Concomitant]
  9. Prednisone Oral Tablet Therapy Pack [Concomitant]
  10. Flonase Allergy Relief Nasal Suspension 50 MCG/A [Concomitant]
  11. mETROnidazole Oral Tablets [Concomitant]

REACTIONS (2)
  - Viral infection [None]
  - Lung disorder [None]

NARRATIVE: CASE EVENT DATE: 20250502
